FAERS Safety Report 19684744 (Version 2)
Quarter: 2022Q2

REPORT INFORMATION
  Report Type: Spontaneous
  Country: US (occurrence: US)
  Receive Date: 20210811
  Receipt Date: 20220614
  Transmission Date: 20220720
  Serious: Yes (Other)
  Sender: FDA-Public Use
  Company Number: US-BAYER-2021-188272

PATIENT
  Age: 62 Year
  Sex: Male

DRUGS (6)
  1. CIPROFLOXACIN [Suspect]
     Active Substance: CIPROFLOXACIN
     Dosage: UNK
     Route: 048
  2. LOSARTAN [Concomitant]
     Active Substance: LOSARTAN
  3. BETAMETHASONE [Concomitant]
     Active Substance: BETAMETHASONE
  4. AMPICILLIN [Concomitant]
     Active Substance: AMPICILLIN
  5. SULFAMETHOXAZOLE\TRIMETHOPRIM [Suspect]
     Active Substance: SULFAMETHOXAZOLE\TRIMETHOPRIM
  6. AMLODIPINE [Concomitant]
     Active Substance: AMLODIPINE BESYLATE

REACTIONS (6)
  - Meningitis aseptic [Recovering/Resolving]
  - Pyrexia [None]
  - Chills [None]
  - Vomiting [None]
  - Myalgia [None]
  - Dizziness [None]
